FAERS Safety Report 24993594 (Version 1)
Quarter: 2025Q1

REPORT INFORMATION
  Report Type: Report from Study
  Country: PK (occurrence: PK)
  Receive Date: 20250221
  Receipt Date: 20250221
  Transmission Date: 20250409
  Serious: Yes (Other)
  Sender: ROCHE
  Company Number: PK-ROCHE-10000205651

PATIENT
  Age: 68 Year
  Sex: Female

DRUGS (1)
  1. AVASTIN [Suspect]
     Active Substance: BEVACIZUMAB
     Indication: Ovarian cancer
     Route: 040
     Dates: start: 20250127

REACTIONS (1)
  - Ovarian cancer recurrent [Unknown]

NARRATIVE: CASE EVENT DATE: 20250127
